FAERS Safety Report 7275691-0 (Version None)
Quarter: 2011Q1

REPORT INFORMATION
  Report Type: 
  Country: None (occurrence: None)
  Receive Date: 20110204
  Receipt Date: 20110127
  Transmission Date: 20110831
  Serious: Yes (Hospitalization)
  Sender: FDA-Public Use
  Company Number: JP-AMGEN-JPNCT2010009880

PATIENT
  Age: 60 Year
  Sex: Female
  Weight: 54 kg

DRUGS (16)
  1. OXINORM [Concomitant]
     Dosage: UNK
     Route: 048
  2. DAI-KENTYU-TO [Concomitant]
     Dosage: UNK
     Route: 048
  3. PANITUMUMAB [Suspect]
     Indication: COLORECTAL CANCER
     Dosage: 6 MG/KG, Q2WK
     Route: 041
     Dates: start: 20100618, end: 20101020
  4. FAMOTIDINE D [Concomitant]
     Dosage: UNK
     Route: 048
  5. PURSENNID [Concomitant]
     Dosage: UNK
     Route: 048
  6. MAGLAX [Concomitant]
     Dosage: UNK
     Route: 048
  7. CALONAL [Concomitant]
     Dosage: UNK
     Route: 048
  8. BUSCOPAN [Concomitant]
     Dosage: UNK
     Route: 042
  9. FLURBIPROFEN [Concomitant]
     Dosage: UNK
     Route: 042
  10. FULCALIQ 2 [Concomitant]
     Dosage: UNK
     Route: 042
  11. TPN ELECTROLYTES IN PLASTIC CONTAINER [Concomitant]
     Dosage: UNK
     Route: 042
  12. GASMOTIN [Concomitant]
     Dosage: UNK
     Route: 048
  13. LACTEC [Concomitant]
     Dosage: UNK
     Route: 042
  14. LANSOPRAZOLE OD [Concomitant]
     Dosage: UNK
     Route: 048
  15. LOXONIN [Concomitant]
     Dosage: UNK
     Route: 048
  16. ATARAX [Concomitant]
     Dosage: UNK
     Route: 042

REACTIONS (2)
  - STOMATITIS [None]
  - SUBILEUS [None]
